FAERS Safety Report 5331465-9 (Version None)
Quarter: 2007Q1

REPORT INFORMATION
  Report Type: 
  Country: None (occurrence: None)
  Receive Date: 20070306
  Receipt Date: 20051202
  Transmission Date: 20070707
  Serious: Yes (Other)
  Sender: FDA-Public Use
  Company Number: A03200504122

PATIENT
  Age: 72 Year
  Sex: Male
  Weight: 63.5036 kg

DRUGS (2)
  1. PLAVIX [Suspect]
     Indication: SURGERY
     Dosage: 75 MG QD - ORAL
     Route: 048
     Dates: start: 20050901
  2. ASPIRIN [Suspect]
     Dosage: 325 MG QD - ORAL
     Route: 048
     Dates: start: 20050901

REACTIONS (6)
  - CONTUSION [None]
  - DIZZINESS [None]
  - GINGIVAL BLEEDING [None]
  - HAEMATURIA [None]
  - RECTAL HAEMORRHAGE [None]
  - SPIDER VEIN [None]
